FAERS Safety Report 7650238-5 (Version None)
Quarter: 2011Q3

REPORT INFORMATION
  Report Type: 
  Country: None (occurrence: None)
  Receive Date: 20110719
  Receipt Date: 20101213
  Transmission Date: 20111222
  Serious: Yes (Hospitalization)
  Sender: FDA-Public Use
  Company Number: 163-21880-10061705

PATIENT
  Age: 70 Year
  Sex: Female
  Weight: 62.5 kg

DRUGS (31)
  1. REVLIMID [Suspect]
     Indication: ACUTE MYELOID LEUKAEMIA
     Dosage: 50 MG, DAILY, PO
     Route: 048
     Dates: start: 20100528, end: 20100617
  2. OXYGEN (OXYGEN) (INHALANT) [Concomitant]
  3. MEROPENEM (MEROPENEM) (UNKNOWN) [Concomitant]
  4. TIGECYCLINE (TIGECYCLINE) [Concomitant]
  5. VFEND (VORICONAZOLE) (TABLETS) [Concomitant]
  6. ATROVENT (IPRATROPIUM BROMIDE) (INHALANT) [Concomitant]
  7. ROXICODONE (OXYCODONE HYDROCHLORIDE) (TABLETS) [Concomitant]
  8. PLATELETS (PLATELETS) (INJECTION FOR INFUSION) [Concomitant]
  9. AZITHROMYCIN [Concomitant]
  10. DOCUSATE (DOCUSATE) (UNKNOWN) [Concomitant]
  11. ONDANSETRON (ONDANSETRON) (TABLETS) [Concomitant]
  12. ATIVAN [Concomitant]
  13. TYLENOL (PARACETAMOL) (TABLETS) [Concomitant]
  14. NORMAL SALINE (SODIUM CHLORIDE) (SOLUTION) [Concomitant]
  15. HYDRCORTISONE (HYDROCORTISONE) (UNKNOWN) [Concomitant]
  16. REFRESH PLUS (CARMELLOSE SODIUM) (0.5 PERCENT, DROPS) [Concomitant]
  17. CEFEPIME (CEFEPIME) (UNKNOWN) [Concomitant]
  18. PACKED RED BLOOD CELLS (RED BLOOD CELLS, CONCENTRATED) (INJECTION FOR [Concomitant]
  19. AMBISOME (AMPHOTERICINE B, LIPOSOME) (UNKNOWN) [Concomitant]
  20. HYDROXYUREA [Concomitant]
  21. LIPITOR [Concomitant]
  22. MIRALAX (MACROGOL) (UNKNOWN) [Concomitant]
  23. VANCOMYCIN [Concomitant]
  24. LEVOFLOXACIN [Concomitant]
  25. AZACITIDINE [Suspect]
     Indication: ACUTE MYELOID LEUKAEMIA
     Dosage: 75 MG/M2, QD, IV
     Route: 042
     Dates: start: 20100521, end: 20100527
  26. OMEPRAZOLE [Concomitant]
  27. ACYCLOVIR [Concomitant]
  28. DIPHENHYDRAMINE (DIPHENHYDRAMINE) (CAPSULES) [Concomitant]
  29. SENNA (SENNA) (TABLETS) [Concomitant]
  30. PROCHLORPERAZINE (PROCHLORPERAZINE) (TABLETS) [Concomitant]
  31. FLUCONAZOLE [Concomitant]

REACTIONS (1)
  - FEBRILE NEUTROPENIA [None]
